FAERS Safety Report 17394537 (Version 1)
Quarter: 2020Q1

REPORT INFORMATION
  Report Type: Report from Study
  Country: RU (occurrence: RU)
  Receive Date: 20200210
  Receipt Date: 20200210
  Transmission Date: 20200409
  Serious: Yes (Other)
  Sender: FDA-Public Use
  Company Number: RU-TAIHO ONCOLOGY  INC-IM-2020-00172

PATIENT
  Age: 81 Year
  Sex: Male
  Weight: 70 kg

DRUGS (3)
  1. BEVACIZUMAB. [Suspect]
     Active Substance: BEVACIZUMAB
     Indication: COLORECTAL CANCER METASTATIC
     Dosage: 350 MG (5 MG/KG), ON DAY 1 AND 15 OF EACH 28- DAY CYCLE
     Route: 042
     Dates: start: 20191219, end: 20200103
  2. LONSURF [Suspect]
     Active Substance: TIPIRACIL HYDROCHLORIDE\TRIFLURIDINE
     Indication: COLORECTAL CANCER METASTATIC
     Dosage: 65 MG (35 MG/M2) BID, ORALLY, ON DAYS 1-5 AND 8-12 OF EACH 28-DAY CYCLE
     Route: 048
     Dates: start: 20191219, end: 20191230
  3. FENULES [Concomitant]
     Indication: HYPOCHROMIC ANAEMIA
     Dosage: 1 DF, BID
     Route: 048
     Dates: start: 20191219

REACTIONS (1)
  - Pulmonary embolism [Not Recovered/Not Resolved]

NARRATIVE: CASE EVENT DATE: 20200130
